FAERS Safety Report 11919868 (Version 1)
Quarter: 2016Q1

REPORT INFORMATION
  Report Type: Spontaneous
  Country: US (occurrence: None)
  Receive Date: 20160114
  Receipt Date: 20160114
  Transmission Date: 20160526
  Serious: Yes (Other)
  Sender: FDA-Public Use
  Company Number: None

PATIENT
  Age: 64 Year
  Sex: Male
  Weight: 86.18 kg

DRUGS (4)
  1. HIGH BLOOD PRESSURRE MEDS-VARIOUS [Concomitant]
  2. REPATHA [Suspect]
     Active Substance: EVOLOCUMAB
     Indication: HYPERLIPIDAEMIA
     Dates: start: 20151005, end: 20151115
  3. FLONASE [Concomitant]
     Active Substance: FLUTICASONE PROPIONATE
  4. BABY ASPIRIN [Concomitant]
     Active Substance: ASPIRIN

REACTIONS (28)
  - Aphasia [None]
  - Muscular weakness [None]
  - Dysphonia [None]
  - Malabsorption [None]
  - Nasopharyngitis [None]
  - Memory impairment [None]
  - Exercise tolerance decreased [None]
  - Sneezing [None]
  - Musculoskeletal stiffness [None]
  - Fatigue [None]
  - Nervousness [None]
  - Dyspnoea [None]
  - Muscle atrophy [None]
  - Activities of daily living impaired [None]
  - Arthralgia [None]
  - Weight decreased [None]
  - Organ failure [None]
  - Impaired work ability [None]
  - Sleep disorder [None]
  - Pain [None]
  - Myalgia [None]
  - Hyperhidrosis [None]
  - Asthenia [None]
  - Hypersensitivity [None]
  - Feeling abnormal [None]
  - Disturbance in attention [None]
  - Tremor [None]
  - Laboratory test abnormal [None]

NARRATIVE: CASE EVENT DATE: 20151005
